FAERS Safety Report 4524959-7 (Version None)
Quarter: 2004Q4

REPORT INFORMATION
  Report Type: 
  Country: None (occurrence: None)
  Receive Date: 20041210
  Receipt Date: 20041123
  Transmission Date: 20050328
  Serious: Yes (Death)
  Sender: FDA-Public Use
  Company Number: 2004AL000915

PATIENT
  Age: 38 Year
  Sex: Male

DRUGS (5)
  1. CLONAZEPAM [Suspect]
     Dosage: PO
     Route: 048
  2. TRAMADOL HCL [Suspect]
     Dosage: PO
     Route: 048
  3. CARISOPRODOL [Suspect]
     Dosage: PO
     Route: 048
  4. OLANZAPINE [Suspect]
     Dosage: PO
     Route: 048
  5. ETHANOL [Suspect]
     Dosage: PO
     Route: 048

REACTIONS (3)
  - CARDIO-RESPIRATORY ARREST [None]
  - DRUG TOXICITY [None]
  - MULTIPLE DRUG OVERDOSE [None]
